FAERS Safety Report 8951631 (Version 2)
Quarter: 2014Q1

REPORT INFORMATION
  Report Type: Spontaneous
  Country: US (occurrence: US)
  Receive Date: 20121204
  Receipt Date: 20140106
  Transmission Date: 20141002
  Serious: No
  Sender: FDA-Public Use
  Company Number: US-ASTRAZENECA-2012SE89526

PATIENT
  Age: 58 Year
  Sex: Male
  Weight: 68.9 kg

DRUGS (6)
  1. PRILOSEC [Suspect]
     Indication: HYPERCHLORHYDRIA
     Route: 048
     Dates: start: 201209
  2. TOPROL XL [Suspect]
     Route: 048
  3. TOPROL XL [Suspect]
     Dosage: 50MG IN THE MORNING AND 25MG AT NIGHT
     Route: 048
  4. STATIN MEDICATION [Suspect]
     Route: 065
  5. FISH OIL [Concomitant]
  6. BLOOD PRESSURE MEDICINE [Concomitant]

REACTIONS (4)
  - Liver function test abnormal [Not Recovered/Not Resolved]
  - Somnolence [Unknown]
  - Impaired work ability [Unknown]
  - Off label use [Unknown]
